FAERS Safety Report 10772235 (Version 1)
Quarter: 2015Q1

REPORT INFORMATION
  Report Type: Report from Study
  Country: None (occurrence: BR)
  Receive Date: 20150206
  Receipt Date: 20150206
  Transmission Date: 20150721
  Serious: Yes (Other)
  Sender: FDA-Public Use
  Company Number: BR-BIOGEN USA-2014BI039751

PATIENT
  Age: 54 Year
  Sex: Female

DRUGS (3)
  1. AVONEX [Suspect]
     Active Substance: INTERFERON BETA-1A
     Indication: MULTIPLE SCLEROSIS
     Route: 030
     Dates: start: 20060910, end: 20130422
  2. AVONEX [Suspect]
     Active Substance: INTERFERON BETA-1A
     Route: 030
     Dates: start: 20130501
  3. TEGRETOL [Concomitant]
     Active Substance: CARBAMAZEPINE
     Indication: BREAST NEOPLASM
     Dates: start: 2013

REACTIONS (4)
  - Breast neoplasm [None]
  - Breast neoplasm [Unknown]
  - Multiple sclerosis relapse [Not Recovered/Not Resolved]
  - Coordination abnormal [None]

NARRATIVE: CASE EVENT DATE: 2013
